FAERS Safety Report 7945650-0 (Version None)
Quarter: 2011Q4

REPORT INFORMATION
  Report Type: 
  Country: None (occurrence: None)
  Receive Date: 20111129
  Receipt Date: 20111121
  Transmission Date: 20120403
  Serious: Yes (Death)
  Sender: FDA-Public Use
  Company Number: US-CELGENEUS-163-21880-11113136

PATIENT
  Age: 75 Year
  Sex: Male

DRUGS (7)
  1. REVLIMID [Suspect]
     Indication: MULTIPLE MYELOMA
     Dosage: 25 MILLIGRAM
     Route: 048
     Dates: start: 20110601, end: 20111101
  2. CLARITHROMYCIN [Concomitant]
     Route: 065
  3. LORAZEPAM [Concomitant]
     Route: 065
  4. ACYCLOVIR [Concomitant]
     Route: 065
  5. DEXAMETHASONE [Concomitant]
     Route: 065
  6. VICODIN [Concomitant]
     Route: 065
  7. WARFARIN SODIUM [Concomitant]
     Route: 065

REACTIONS (3)
  - THERAPY RESPONDER [None]
  - DISEASE PROGRESSION [None]
  - DEATH [None]
